FAERS Safety Report 6471493-3 (Version None)
Quarter: 2009Q4

REPORT INFORMATION
  Report Type: 
  Country: None (occurrence: None)
  Receive Date: 20091203
  Receipt Date: 20080228
  Transmission Date: 20100525
  Serious: Yes (Hospitalization)
  Sender: FDA-Public Use
  Company Number: TR-ELI_LILLY_AND_COMPANY-TR200802006957

PATIENT
  Age: 46 Year
  Sex: Female
  Weight: 84 kg

DRUGS (9)
  1. HUMULIN R [Suspect]
     Indication: TYPE 2 DIABETES MELLITUS
     Dosage: 10 U, EACH MORNING
     Route: 058
     Dates: start: 20080101
  2. HUMULIN R [Suspect]
     Dosage: 10 U, AT NOON
     Route: 058
     Dates: start: 20080101
  3. HUMULIN R [Suspect]
     Dosage: 10 U, EACH EVENING
     Route: 058
     Dates: start: 20080101
  4. LEVOTIRON [Concomitant]
     Dosage: UNK, DAILY (1/D)
     Route: 048
  5. NEXIUM [Concomitant]
     Dosage: UNK, DAILY (1/D)
     Route: 048
  6. CALCIMAX /00471001/ [Concomitant]
     Dosage: UNK, 2/D
     Route: 048
  7. CONTRACTUBEX /00644601/ [Concomitant]
     Dosage: UNK, 2/D
     Route: 061
  8. INSULIN GLARGINE [Concomitant]
     Dosage: 20 U, EACH EVENING
     Route: 065
  9. RHEUMON [Concomitant]
     Dosage: UNK, 2/D
     Route: 061

REACTIONS (1)
  - THYROID OPERATION [None]
